FAERS Safety Report 6283246-X (Version None)
Quarter: 2009Q3

REPORT INFORMATION
  Report Type: 
  Country: None (occurrence: None)
  Receive Date: 20090722
  Receipt Date: 20090722
  Transmission Date: 20100115
  Serious: Yes (Other)
  Sender: FDA-Public Use
  Company Number: None

PATIENT
  Age: 32 Year
  Sex: Female
  Weight: 58.9676 kg

DRUGS (1)
  1. GAMMAGARD S/D [Suspect]
     Dates: start: 20090706

REACTIONS (2)
  - BACK PAIN [None]
  - MENINGITIS ASEPTIC [None]
